FAERS Safety Report 9732756 (Version 2)
Quarter: 2013Q4

REPORT INFORMATION
  Report Type: Spontaneous
  Country: JP (occurrence: JP)
  Receive Date: 20131204
  Receipt Date: 20131219
  Transmission Date: 20140711
  Serious: Yes (Other)
  Sender: FDA-Public Use
  Company Number: JP-GLAXOSMITHKLINE-B0949237A

PATIENT
  Sex: 0

DRUGS (1)
  1. VOTRIENT 200MG [Suspect]
     Route: 048

REACTIONS (1)
  - Pneumonitis [Unknown]
